FAERS Safety Report 16817891 (Version 1)
Quarter: 2019Q3

REPORT INFORMATION
  Report Type: Spontaneous
  Country: FR (occurrence: FR)
  Receive Date: 20190917
  Receipt Date: 20190917
  Transmission Date: 20191005
  Serious: Yes (Hospitalization)
  Sender: FDA-Public Use
  Company Number: FR-MYLANLABS-2019M1086532

PATIENT
  Age: 42 Year
  Sex: Female
  Weight: 72 kg

DRUGS (4)
  1. DEXAMBUTOL [Concomitant]
     Active Substance: ETHAMBUTOL HYDROCHLORIDE
     Dosage: UNK
  2. ZOPHREN                            /00955302/ [Concomitant]
     Active Substance: ONDANSETRON
     Dosage: UNK
  3. MOXIFLOXACIN. [Suspect]
     Active Substance: MOXIFLOXACIN
     Indication: PRODUCT USED FOR UNKNOWN INDICATION
     Dosage: 800 MILLIGRAM, QD
     Route: 048
     Dates: start: 20190328, end: 201904
  4. RIFADINE                           /00146901/ [Concomitant]
     Active Substance: RIFAMPIN
     Dosage: UNK

REACTIONS (4)
  - Paraesthesia [Recovering/Resolving]
  - Vomiting [Recovering/Resolving]
  - Long QT syndrome [Recovering/Resolving]
  - Nausea [Recovering/Resolving]

NARRATIVE: CASE EVENT DATE: 201904
